FAERS Safety Report 16324638 (Version 1)
Quarter: 2019Q2

REPORT INFORMATION
  Report Type: Spontaneous
  Country: JP (occurrence: JP)
  Receive Date: 20190517
  Receipt Date: 20190517
  Transmission Date: 20190711
  Serious: Yes (Other)
  Sender: FDA-Public Use
  Company Number: JP-ACTELION-A-CH2019-190220

PATIENT
  Age: 6 Month
  Sex: Male

DRUGS (33)
  1. NITRIC OXIDE. [Concomitant]
     Active Substance: NITRIC OXIDE
     Dosage: 20 PPM, QD
     Route: 055
  2. OXYGEN. [Concomitant]
     Active Substance: OXYGEN
     Dosage: 1 L/MIN
  3. TADALAFIL. [Concomitant]
     Active Substance: TADALAFIL
     Dosage: 0.3 MG/KG, QD
     Route: 048
  4. TADALAFIL. [Concomitant]
     Active Substance: TADALAFIL
     Dosage: 0.6 MG/KG, QD
     Route: 048
  5. TADALAFIL. [Concomitant]
     Active Substance: TADALAFIL
     Dosage: 1 MG/KG, QD
     Route: 048
  6. AMBRISENTAN [Concomitant]
     Active Substance: AMBRISENTAN
     Dosage: 0.2 MG/KG, QD
  7. BOSENTAN. [Suspect]
     Active Substance: BOSENTAN
     Dosage: 1 MG/KG, QD
     Route: 048
  8. NITRIC OXIDE. [Concomitant]
     Active Substance: NITRIC OXIDE
     Dosage: 1 PPM, QD
     Route: 055
  9. NITRIC OXIDE. [Concomitant]
     Active Substance: NITRIC OXIDE
     Dosage: 8 PPM, QD
     Route: 055
  10. NITRIC OXIDE. [Concomitant]
     Active Substance: NITRIC OXIDE
     Dosage: 2 PPM, QD
     Route: 055
  11. EPOPROSTENOL SODIUM. [Suspect]
     Active Substance: EPOPROSTENOL SODIUM
     Dosage: 5 NG/KG, QD
     Route: 042
  12. EPOPROSTENOL SODIUM. [Suspect]
     Active Substance: EPOPROSTENOL SODIUM
     Dosage: 2 NG/KG, QD
     Route: 042
  13. NITRIC OXIDE. [Concomitant]
     Active Substance: NITRIC OXIDE
     Dosage: 5 PPM, QD
     Route: 055
  14. BERAPROST [Concomitant]
     Active Substance: BERAPROST
     Dosage: 1 MG/KG, QD
  15. BERAPROST [Concomitant]
     Active Substance: BERAPROST
     Dosage: 4 MG/KG, QD
  16. EPOPROSTENOL SODIUM. [Suspect]
     Active Substance: EPOPROSTENOL SODIUM
     Indication: PULMONARY ARTERIAL HYPERTENSION
     Dosage: 2 NG/KG, QD
     Route: 042
  17. EPOPROSTENOL SODIUM. [Suspect]
     Active Substance: EPOPROSTENOL SODIUM
     Dosage: 5 NG/KG, QD
     Route: 042
  18. BOSENTAN. [Suspect]
     Active Substance: BOSENTAN
     Indication: PULMONARY ARTERIAL HYPERTENSION
     Dosage: 4 MG/KG, QD
     Route: 048
  19. NITRIC OXIDE. [Concomitant]
     Active Substance: NITRIC OXIDE
     Dosage: 10 PPM, QD
     Route: 055
  20. NITRIC OXIDE. [Concomitant]
     Active Substance: NITRIC OXIDE
     Dosage: 5 PPM, QD
     Route: 055
  21. EPOPROSTENOL SODIUM. [Suspect]
     Active Substance: EPOPROSTENOL SODIUM
     Dosage: 10 NG/KG, QD
     Route: 042
  22. BOSENTAN. [Suspect]
     Active Substance: BOSENTAN
     Dosage: 3 MG/KG, QD
     Route: 048
  23. BERAPROST [Concomitant]
     Active Substance: BERAPROST
     Dosage: 1 MG/KG, QD
  24. BOSENTAN. [Suspect]
     Active Substance: BOSENTAN
     Dosage: 5 MG/KG, QD
     Route: 048
  25. NITRIC OXIDE. [Concomitant]
     Active Substance: NITRIC OXIDE
     Dosage: 1 PPM, QD
     Route: 055
  26. NITRIC OXIDE. [Concomitant]
     Active Substance: NITRIC OXIDE
     Dosage: 20 PPM, QD
     Route: 055
  27. NITRIC OXIDE. [Concomitant]
     Active Substance: NITRIC OXIDE
     Dosage: 5 PPM, QD
     Route: 055
  28. SILDENAFIL. [Concomitant]
     Active Substance: SILDENAFIL
     Route: 048
  29. NITRIC OXIDE. [Concomitant]
     Active Substance: NITRIC OXIDE
     Dosage: 10 PPM, QD
     Route: 055
  30. NITRIC OXIDE. [Concomitant]
     Active Substance: NITRIC OXIDE
     Dosage: 15 PPM, QD
     Route: 055
  31. NITRIC OXIDE. [Concomitant]
     Active Substance: NITRIC OXIDE
     Dosage: 10 PPM, QD
     Route: 055
  32. BOSENTAN. [Suspect]
     Active Substance: BOSENTAN
     Dosage: 2 MG/KG, QD
     Route: 048
  33. BERAPROST [Concomitant]
     Active Substance: BERAPROST
     Dosage: 3 MG/KG, QD

REACTIONS (6)
  - Oxygen saturation decreased [Unknown]
  - Crying [Unknown]
  - Cyanosis [Unknown]
  - Cardio-respiratory arrest [Unknown]
  - Tracheomalacia [Recovering/Resolving]
  - Positive end-expiratory pressure [Unknown]
